FAERS Safety Report 5362408-X (Version None)
Quarter: 2007Q2

REPORT INFORMATION
  Report Type: 
  Country: None (occurrence: None)
  Receive Date: 20070619
  Receipt Date: 20070613
  Transmission Date: 20071010
  Serious: Yes (Life-Threatening, Hospitalization)
  Sender: FDA-Public Use
  Company Number: ES-ASTRAZENECA-2007AC01093

PATIENT
  Age: 67 Year
  Sex: Female

DRUGS (5)
  1. NEXIUM [Suspect]
     Indication: DYSPEPSIA
     Route: 048
     Dates: start: 20070221, end: 20070404
  2. ORFIDAL WYETH [Suspect]
     Route: 048
     Dates: start: 20040101, end: 20070404
  3. DOGMATIL [Suspect]
     Indication: DIZZINESS
     Route: 048
     Dates: start: 20040101, end: 20070404
  4. DOGMATIL [Suspect]
     Route: 048
     Dates: start: 20040101, end: 20070404
  5. PANTECTA [Concomitant]
     Indication: DYSPEPSIA
     Route: 048
     Dates: start: 20040101, end: 20070220

REACTIONS (4)
  - HEPATITIS [None]
  - OEDEMA [None]
  - STEVENS-JOHNSON SYNDROME [None]
  - THROMBOCYTOPENIA [None]
